FAERS Safety Report 9293048 (Version 1)
Quarter: 2013Q2

REPORT INFORMATION
  Report Type: Spontaneous
  Country: US (occurrence: None)
  Receive Date: 20130513
  Receipt Date: 20130513
  Transmission Date: 20140414
  Serious: Yes (Other)
  Sender: FDA-Public Use
  Company Number: 2013AP004961

PATIENT
  Age: 72 Year
  Sex: Male

DRUGS (2)
  1. ENALAPRIL MALEATE TABLETS, USP [Suspect]
  2. CARBOPLATIN [Suspect]

REACTIONS (1)
  - Renal failure acute [None]
